FAERS Safety Report 18873716 (Version 1)
Quarter: 2021Q1

REPORT INFORMATION
  Report Type: Report from Study
  Country: US (occurrence: US)
  Receive Date: 20210210
  Receipt Date: 20210210
  Transmission Date: 20210420
  Serious: No
  Sender: FDA-Public Use
  Company Number: NVSC2021US024171

PATIENT
  Age: 61 Year
  Sex: Female

DRUGS (1)
  1. COSENTYX [Suspect]
     Active Substance: SECUKINUMAB
     Indication: PSORIATIC ARTHROPATHY
     Dosage: 150 MG, Q4W (INJECT 1 PEN (150 MG) SUBCUTANEOUSLY ONCE EVERY 4 WEEKS)
     Route: 058

REACTIONS (2)
  - Herpes virus infection [Unknown]
  - Stress [Unknown]

NARRATIVE: CASE EVENT DATE: 20210131
